FAERS Safety Report 7535747-1 (Version None)
Quarter: 2011Q2

REPORT INFORMATION
  Report Type: 
  Country: None (occurrence: None)
  Receive Date: 20110609
  Receipt Date: 20110331
  Transmission Date: 20111010
  Serious: No
  Sender: FDA-Public Use
  Company Number: US-KINGPHARMUSA00001-K201100377

PATIENT
  Sex: Male

DRUGS (2)
  1. EMBEDA [Suspect]
     Indication: LYME DISEASE
     Dosage: UNK
  2. EMBEDA [Suspect]
     Indication: PAIN

REACTIONS (4)
  - DIZZINESS [None]
  - DRUG EFFECT DECREASED [None]
  - INSOMNIA [None]
  - SEXUAL DYSFUNCTION [None]
